FAERS Safety Report 16701461 (Version 1)
Quarter: 2019Q3

REPORT INFORMATION
  Report Type: Spontaneous
  Country: US (occurrence: US)
  Receive Date: 20190814
  Receipt Date: 20190814
  Transmission Date: 20191004
  Serious: Yes (Other)
  Sender: FDA-Public Use
  Company Number: US-MYLANLABS-2019M1073514

PATIENT
  Age: 58 Year
  Sex: Male

DRUGS (3)
  1. DISULFIRAM. [Suspect]
     Active Substance: DISULFIRAM
     Indication: BABESIOSIS
     Dosage: 125 MILLIGRAM, QOD
     Route: 065
  2. DISULFIRAM. [Suspect]
     Active Substance: DISULFIRAM
     Indication: LYME DISEASE
     Dosage: 1 TO 2 TABLETS PER DAY
     Route: 065
  3. DISULFIRAM. [Suspect]
     Active Substance: DISULFIRAM
     Dosage: 500 MILLIGRAM, QD
     Route: 065

REACTIONS (2)
  - Fatigue [Unknown]
  - Off label use [Unknown]
